FAERS Safety Report 26022247 (Version 1)
Quarter: 2025Q4

REPORT INFORMATION
  Report Type: Spontaneous
  Country: JP (occurrence: JP)
  Receive Date: 20251110
  Receipt Date: 20251110
  Transmission Date: 20260118
  Serious: Yes (Other)
  Sender: NOVARTIS
  Company Number: JP-002147023-NVSC2025JP172477

PATIENT
  Age: 73 Year
  Sex: Female

DRUGS (5)
  1. EVEROLIMUS [Suspect]
     Active Substance: EVEROLIMUS
     Indication: Hormone receptor positive HER2 negative breast cancer
     Dosage: QD, (CONSECUTIVE DAYS)
     Route: 065
  2. CAPIVASERTIB [Concomitant]
     Active Substance: CAPIVASERTIB
     Indication: Hormone receptor positive HER2 negative breast cancer
     Dosage: 4 DAYS ON/3 DAYS OFF
     Route: 065
  3. CAPIVASERTIB [Concomitant]
     Active Substance: CAPIVASERTIB
     Dosage: 4 DAYS ON/3 DAYS OFF
     Route: 065
  4. FULVESTRANT [Concomitant]
     Active Substance: FULVESTRANT
     Indication: Hormone receptor positive HER2 negative breast cancer
     Dosage: UNK
     Route: 065
  5. RAPAMYCIN [Concomitant]
     Active Substance: SIROLIMUS
     Indication: Hormone receptor positive HER2 negative breast cancer
     Route: 065

REACTIONS (1)
  - Blood glucose fluctuation [Recovered/Resolved]
